FAERS Safety Report 23038173 (Version 1)
Quarter: 2023Q4

REPORT INFORMATION
  Report Type: Spontaneous
  Country: US (occurrence: US)
  Receive Date: 20231006
  Receipt Date: 20231006
  Transmission Date: 20240110
  Serious: No
  Sender: FDA-Public Use
  Company Number: US-INCYTE CORPORATION-2023IN010095

PATIENT

DRUGS (1)
  1. JAKAFI [Suspect]
     Active Substance: RUXOLITINIB
     Indication: Polycythaemia vera
     Dosage: 25 MILLIGRAM, BID
     Route: 048
     Dates: start: 201903

REACTIONS (3)
  - Fatigue [Unknown]
  - Asthenia [Unknown]
  - Decreased activity [Unknown]
